FAERS Safety Report 5048327-7 (Version None)
Quarter: 2006Q3

REPORT INFORMATION
  Report Type: 
  Country: None (occurrence: None)
  Receive Date: 20060711
  Receipt Date: 20060704
  Transmission Date: 20061208
  Serious: Yes (Other)
  Sender: FDA-Public Use
  Company Number: GB-BOEHRINGER INGELHEIM PHARMACEUTICALS, INC.-2006-UK-03068UK

PATIENT
  Age: 7 Year
  Sex: Male

DRUGS (4)
  1. DIXARIT [Suspect]
     Indication: ATTENTION DEFICIT/HYPERACTIVITY DISORDER
     Dosage: 2/1 DAY
     Route: 048
     Dates: start: 20031201, end: 20040101
  2. RITALIN [Suspect]
     Indication: ATTENTION DEFICIT/HYPERACTIVITY DISORDER
     Dosage: 1/1 PER DAY
     Route: 048
     Dates: start: 20031001
  3. BECOTIDE [Concomitant]
  4. SALBUTAMOL [Concomitant]

REACTIONS (2)
  - AGGRESSION [None]
  - ALOPECIA [None]
